FAERS Safety Report 8006895-7 (Version None)
Quarter: 2011Q4

REPORT INFORMATION
  Report Type: 
  Country: None (occurrence: None)
  Receive Date: 20111227
  Receipt Date: 20111219
  Transmission Date: 20120403
  Serious: Yes (Other)
  Sender: FDA-Public Use
  Company Number: AU-JNJFOC-20111208502

PATIENT
  Age: 64 Year
  Sex: Male

DRUGS (4)
  1. ANTI-EPILEPTIC DRUG UNSPECIFIED [Concomitant]
     Route: 065
  2. TOPAMAX [Suspect]
     Indication: ESSENTIAL TREMOR
     Route: 048
     Dates: start: 20111216
  3. INDERAL [Concomitant]
     Route: 065
  4. MYSOLINE [Concomitant]
     Route: 065

REACTIONS (4)
  - CIRCADIAN RHYTHM SLEEP DISORDER [None]
  - FEELING ABNORMAL [None]
  - HANGOVER [None]
  - SLEEP DISORDER [None]
